FAERS Safety Report 17315721 (Version 1)
Quarter: 2020Q1

REPORT INFORMATION
  Report Type: Spontaneous
  Country: US (occurrence: US)
  Receive Date: 20200124
  Receipt Date: 20200124
  Transmission Date: 20200409
  Serious: Yes (Other)
  Sender: FDA-Public Use
  Company Number: US-ASTRAZENECA-2020SE09525

PATIENT
  Age: 64 Year
  Sex: Male
  Weight: 104.3 kg

DRUGS (8)
  1. CENTRIUM [Concomitant]
     Indication: VITAMIN SUPPLEMENTATION
     Route: 048
  2. RAMIPRIL. [Concomitant]
     Active Substance: RAMIPRIL
     Indication: HYPERTENSION
     Route: 048
  3. VITAMIN E [Concomitant]
     Active Substance: .ALPHA.-TOCOPHEROL
     Dosage: 400
     Route: 048
  4. BRILINTA [Suspect]
     Active Substance: TICAGRELOR
     Indication: CORONARY ARTERY DISEASE
     Route: 048
     Dates: start: 20191111
  5. COQ10 [Concomitant]
     Active Substance: UBIDECARENONE
     Indication: MITOCHONDRIAL ENZYME DEFICIENCY
     Route: 048
  6. ASPRIN [Concomitant]
     Active Substance: ASPIRIN
     Indication: ACUTE CORONARY SYNDROME
     Route: 048
     Dates: start: 20191111
  7. METOPROLOL SUCCINATE. [Suspect]
     Active Substance: METOPROLOL SUCCINATE
     Indication: HYPERTENSION
     Route: 048
  8. ROSUVASTATIN CALCIUM. [Suspect]
     Active Substance: ROSUVASTATIN CALCIUM
     Indication: BLOOD CALCIUM INCREASED
     Route: 048

REACTIONS (5)
  - Troponin increased [Recovering/Resolving]
  - Dyspnoea [Unknown]
  - Blood calcium increased [Unknown]
  - Supraventricular tachycardia [Recovered/Resolved]
  - Coronary artery occlusion [Recovering/Resolving]

NARRATIVE: CASE EVENT DATE: 2019
